FAERS Safety Report 20437600 (Version 1)
Quarter: 2022Q1

REPORT INFORMATION
  Report Type: Spontaneous
  Country: US (occurrence: US)
  Receive Date: 20220207
  Receipt Date: 20220207
  Transmission Date: 20220424
  Serious: Yes (Other)
  Sender: FDA-Public Use
  Company Number: US-ELI_LILLY_AND_COMPANY-US202201010228

PATIENT
  Sex: Male

DRUGS (2)
  1. HUMALOG [Suspect]
     Active Substance: INSULIN LISPRO
     Indication: Type 2 diabetes mellitus
     Dosage: 35 U, UNKNOWN
     Route: 058
     Dates: start: 202103
  2. HUMALOG [Suspect]
     Active Substance: INSULIN LISPRO
     Dosage: 35 U, UNKNOWN
     Route: 058

REACTIONS (4)
  - Foot fracture [Unknown]
  - Localised infection [Unknown]
  - Pain in extremity [Unknown]
  - Foot deformity [Unknown]
